FAERS Safety Report 15472806 (Version 5)
Quarter: 2018Q4

REPORT INFORMATION
  Report Type: Spontaneous
  Country: US (occurrence: US)
  Receive Date: 20181008
  Receipt Date: 20181231
  Transmission Date: 20190205
  Serious: Yes (Other)
  Sender: FDA-Public Use
  Company Number: US-PFIZER INC-2018397455

PATIENT
  Age: 74 Year
  Sex: Female
  Weight: 75 kg

DRUGS (8)
  1. COREG [Concomitant]
     Active Substance: CARVEDILOL
     Dosage: UNK
  2. SUTENT [Suspect]
     Active Substance: SUNITINIB MALATE
     Indication: RENAL CANCER STAGE IV
     Dosage: 37.5 MG, CYCLIC (DAILY FOR 2 WEEKS ON / 1 WEEK OFF)
     Dates: start: 20180926
  3. COQ10 [Concomitant]
     Active Substance: UBIDECARENONE
     Dosage: UNK
  4. ELIQUIS [Concomitant]
     Active Substance: APIXABAN
     Dosage: UNK
  5. LASIX [Concomitant]
     Active Substance: FUROSEMIDE
     Dosage: UNK
  6. LISINOPRIL. [Concomitant]
     Active Substance: LISINOPRIL
     Dosage: UNK
  7. BABY ASPIRIN [Concomitant]
     Active Substance: ASPIRIN
     Dosage: UNK
  8. POTASSIUM [Concomitant]
     Active Substance: POTASSIUM
     Dosage: UNK

REACTIONS (18)
  - Cardiotoxicity [Unknown]
  - Haemorrhoidal haemorrhage [Unknown]
  - Dry mouth [Unknown]
  - Constipation [Unknown]
  - Blood glucose increased [Recovering/Resolving]
  - Epistaxis [Recovered/Resolved]
  - Abdominal pain upper [Unknown]
  - Flatulence [Unknown]
  - Gait disturbance [Not Recovered/Not Resolved]
  - Discomfort [Recovered/Resolved]
  - Tooth fracture [Unknown]
  - Dry skin [Unknown]
  - Pollakiuria [Unknown]
  - Dysgeusia [Unknown]
  - Urine odour abnormal [Unknown]
  - Rectal haemorrhage [Unknown]
  - Fatigue [Unknown]
  - Decreased appetite [Unknown]

NARRATIVE: CASE EVENT DATE: 2018
